FAERS Safety Report 6179464-1 (Version None)
Quarter: 2009Q2

REPORT INFORMATION
  Report Type: 
  Country: None (occurrence: None)
  Receive Date: 20090505
  Receipt Date: 20090428
  Transmission Date: 20091009
  Serious: Yes (Hospitalization)
  Sender: FDA-Public Use
  Company Number: FR-BAXTER-2008BH013407

PATIENT
  Age: 70 Year
  Sex: Female
  Weight: 58 kg

DRUGS (8)
  1. CYCLOPHOSPHAMIDE [Suspect]
     Indication: BREAST CANCER
     Route: 042
     Dates: start: 20080821, end: 20081023
  2. IXABEPILONE [Suspect]
     Indication: BREAST CANCER
     Route: 042
     Dates: start: 20081113, end: 20081113
  3. EPIRUBICIN [Suspect]
     Indication: BREAST CANCER
     Route: 042
     Dates: start: 20080821, end: 20081023
  4. FLUOROURACIL [Suspect]
     Indication: BREAST CANCER
     Route: 042
     Dates: start: 20080821, end: 20081023
  5. KYTRIL [Suspect]
     Indication: BREAST CANCER
     Route: 048
     Dates: start: 20081023, end: 20081123
  6. KYTRIL [Suspect]
     Route: 048
     Dates: start: 20081113, end: 20081116
  7. ONDANSETRON HCL [Suspect]
     Indication: BREAST CANCER
     Route: 042
     Dates: start: 20080821, end: 20081023
  8. SOLU-MEDROL [Concomitant]
     Indication: PREMEDICATION
     Route: 042
     Dates: start: 20080821, end: 20081023

REACTIONS (1)
  - HEADACHE [None]
